FAERS Safety Report 15125994 (Version 1)
Quarter: 2018Q3

REPORT INFORMATION
  Report Type: Spontaneous
  Country: GR (occurrence: GR)
  Receive Date: 20180710
  Receipt Date: 20180710
  Transmission Date: 20181010
  Serious: Yes (Death)
  Sender: FDA-Public Use
  Company Number: GR-ASTRAZENECA-2018SE87613

PATIENT
  Age: 37 Year
  Sex: Female

DRUGS (2)
  1. CRIZOTINIB [Suspect]
     Active Substance: CRIZOTINIB
     Indication: LUNG ADENOCARCINOMA
     Route: 065
  2. GEFITINIB. [Suspect]
     Active Substance: GEFITINIB
     Indication: LUNG ADENOCARCINOMA
     Dosage: DOSE UNKNOWN
     Route: 048

REACTIONS (8)
  - Fatigue [Unknown]
  - Off label use [Unknown]
  - Nausea [Unknown]
  - Malignant neoplasm progression [Fatal]
  - Diarrhoea [Unknown]
  - Product use issue [Unknown]
  - Product use in unapproved indication [Unknown]
  - Vomiting [Unknown]
